FAERS Safety Report 25979337 (Version 1)
Quarter: 2025Q4

REPORT INFORMATION
  Report Type: Report from Study
  Country: CN (occurrence: CN)
  Receive Date: 20251030
  Receipt Date: 20251030
  Transmission Date: 20260117
  Serious: Yes (Other)
  Sender: RANBAXY
  Company Number: CN-SUN PHARMACEUTICAL INDUSTRIES LTD-2025R1-534094

PATIENT
  Age: 60 Year
  Sex: Male

DRUGS (3)
  1. OXALIPLATIN [Suspect]
     Active Substance: OXALIPLATIN
     Indication: Hepatic cancer
     Dosage: UNK
     Route: 065
     Dates: start: 20191023
  2. RALTITREXED [Suspect]
     Active Substance: RALTITREXED
     Indication: Hepatic cancer
     Dosage: UNK
     Route: 065
     Dates: start: 20191023
  3. PIRARUBICIN [Suspect]
     Active Substance: PIRARUBICIN
     Indication: Hepatic cancer
     Dosage: UNK
     Route: 065
     Dates: start: 20191023

REACTIONS (1)
  - Nephropathy toxic [Unknown]
